FAERS Safety Report 21591978 (Version 5)
Quarter: 2024Q2

REPORT INFORMATION
  Report Type: Spontaneous
  Country: JP (occurrence: JP)
  Receive Date: 20221114
  Receipt Date: 20240624
  Transmission Date: 20240715
  Serious: Yes (Hospitalization, Other)
  Sender: FDA-Public Use
  Company Number: JP-002147023-NVSJ2022JP101121

PATIENT
  Age: 50 Year
  Sex: Female

DRUGS (2)
  1. TASIGNA [Suspect]
     Active Substance: NILOTINIB
     Indication: Chronic myeloid leukaemia
     Dosage: 600 MG, QD
     Route: 048
     Dates: start: 201812
  2. TASIGNA [Suspect]
     Active Substance: NILOTINIB
     Dosage: 300 MG, QD
     Route: 048
     Dates: end: 202011

REACTIONS (16)
  - Posterior reversible encephalopathy syndrome [Recovering/Resolving]
  - Headache [Recovered/Resolved]
  - Vision blurred [Recovered/Resolved]
  - Blindness transient [Recovering/Resolving]
  - Depressed level of consciousness [Recovering/Resolving]
  - Hypertension [Recovering/Resolving]
  - Face oedema [Unknown]
  - Oedema peripheral [Unknown]
  - Renal impairment [Unknown]
  - Hepatic function abnormal [Unknown]
  - Hepatic enzyme increased [Unknown]
  - Arthralgia [Unknown]
  - Dizziness [Unknown]
  - Abdominal pain [Unknown]
  - Hyperglycaemia [Unknown]
  - Lipid metabolism disorder [Unknown]

NARRATIVE: CASE EVENT DATE: 20201101
